FAERS Safety Report 6562236-3 (Version None)
Quarter: 2010Q1

REPORT INFORMATION
  Report Type: 
  Country: None (occurrence: None)
  Receive Date: 20100130
  Receipt Date: 20091103
  Transmission Date: 20100710
  Serious: No
  Sender: FDA-Public Use
  Company Number: US-ABBOTT-09P-163-0606724-00

PATIENT
  Sex: Female
  Weight: 69.916 kg

DRUGS (7)
  1. HUMIRA [Suspect]
     Indication: RHEUMATOID ARTHRITIS
     Dates: start: 20040101, end: 20080901
  2. HUMIRA [Suspect]
     Dosage: SWITCHED TO HUMIRA PEN
     Dates: start: 20080901
  3. GLUCOPHAGE [Concomitant]
     Indication: GLUCOSE TOLERANCE IMPAIRED
  4. GLYPIZIDE ER [Concomitant]
     Indication: GLUCOSE TOLERANCE IMPAIRED
  5. XANAX [Concomitant]
     Indication: INSOMNIA
  6. XANAX [Concomitant]
     Indication: DRUG USE FOR UNKNOWN INDICATION
  7. LISINOPRIL [Concomitant]
     Indication: HYPERTENSION

REACTIONS (1)
  - SINUSITIS [None]
